FAERS Safety Report 18726424 (Version 1)
Quarter: 2021Q1

REPORT INFORMATION
  Report Type: Spontaneous
  Country: RU (occurrence: RU)
  Receive Date: 20210111
  Receipt Date: 20210111
  Transmission Date: 20210419
  Serious: Yes (Other)
  Sender: FDA-Public Use
  Company Number: RU-ALLERGAN-2100931US

PATIENT
  Sex: Female
  Weight: 70 kg

DRUGS (2)
  1. VENLAZOR [Concomitant]
     Indication: MENTAL DISORDER
     Route: 048
     Dates: start: 20200827, end: 20201007
  2. CARIPRAZINE HCL ? BP [Suspect]
     Active Substance: CARIPRAZINE HYDROCHLORIDE
     Indication: SCHIZOTYPAL PERSONALITY DISORDER
     Dosage: 3 MG, UNKNOWN
     Route: 048
     Dates: start: 20200928, end: 20201016

REACTIONS (5)
  - Derealisation [Not Recovered/Not Resolved]
  - Off label use [Unknown]
  - Hallucination, auditory [Not Recovered/Not Resolved]
  - Treatment failure [Unknown]
  - Psychotic symptom [Not Recovered/Not Resolved]

NARRATIVE: CASE EVENT DATE: 20201007
